FAERS Safety Report 5491794-5 (Version None)
Quarter: 2007Q4

REPORT INFORMATION
  Report Type: 
  Country: None (occurrence: None)
  Receive Date: 20071018
  Receipt Date: 20071001
  Transmission Date: 20080405
  Serious: Yes (Other)
  Sender: FDA-Public Use
  Company Number: 2007S1009838

PATIENT
  Age: 74 Year
  Sex: Male

DRUGS (7)
  1. METHOTREXATE [Suspect]
     Indication: ADENOCARCINOMA
  2. MITOMYCIN [Suspect]
     Indication: ADENOCARCINOMA
  3. PROLEUKIN [Suspect]
     Indication: ADENOCARCINOMA
  4. EPIRUBICIN [Suspect]
     Indication: ADENOCARCINOMA
  5. ETOPOSIDE [Suspect]
     Indication: ADENOCARCINOMA
  6. FLUOROURACIL [Suspect]
     Indication: ADENOCARCINOMA
  7. FOLINIC ACID [Suspect]
     Indication: ADENOCARCINOMA

REACTIONS (3)
  - MYELODYSPLASTIC SYNDROME [None]
  - NO THERAPEUTIC RESPONSE [None]
  - RASH PRURITIC [None]
